FAERS Safety Report 9558408 (Version 2)
Quarter: 2013Q4

REPORT INFORMATION
  Report Type: Spontaneous
  Country: BE (occurrence: BE)
  Receive Date: 20130926
  Receipt Date: 20131217
  Transmission Date: 20140711
  Serious: Yes (Hospitalization, Other)
  Sender: FDA-Public Use
  Company Number: BE-CELGENEUS-013-50794-13092491

PATIENT
  Age: 78 Year
  Sex: Female

DRUGS (5)
  1. VIDAZA [Suspect]
     Indication: MYELODYSPLASTIC SYNDROME
     Dosage: 140 MG
     Route: 058
     Dates: start: 20130910, end: 20130916
  2. FOSAVANCE [Concomitant]
     Indication: OSTEOPOROSIS
     Route: 048
  3. ASAFLOW [Concomitant]
     Indication: PRODUCT USED FOR UNKNOWN INDICATION
     Route: 048
     Dates: end: 20130916
  4. OESTROGEL [Concomitant]
     Indication: PRODUCT USED FOR UNKNOWN INDICATION
     Route: 062
  5. ONDANSETRON [Concomitant]
     Indication: ANTIEMETIC SUPPORTIVE CARE
     Route: 048
     Dates: start: 20130910, end: 20130916

REACTIONS (1)
  - Urinary retention [Recovered/Resolved]
